FAERS Safety Report 7375778-8 (Version None)
Quarter: 2011Q1

REPORT INFORMATION
  Report Type: 
  Country: None (occurrence: None)
  Receive Date: 20110325
  Receipt Date: 20110318
  Transmission Date: 20110831
  Serious: Yes (Hospitalization, Other)
  Sender: FDA-Public Use
  Company Number: US-US-EMD SERONO, INC.-238852K09USA

PATIENT
  Sex: Female

DRUGS (4)
  1. MORPHINE [Concomitant]
     Indication: PAIN
  2. STEROIDS [Concomitant]
     Indication: MULTIPLE SCLEROSIS RELAPSE
     Route: 048
  3. REBIF [Suspect]
     Indication: MULTIPLE SCLEROSIS
     Route: 058
     Dates: start: 20080820
  4. OXYCODONE [Concomitant]
     Indication: PAIN

REACTIONS (4)
  - DEPRESSION [None]
  - MOBILITY DECREASED [None]
  - INJECTION SITE INFECTION [None]
  - SUICIDAL BEHAVIOUR [None]
